FAERS Safety Report 8843648 (Version 2)
Quarter: 2012Q4

REPORT INFORMATION
  Report Type: 
  Country: US (occurrence: US)
  Receive Date: 20121016
  Receipt Date: 20121029
  Transmission Date: 20130627
  Serious: Yes (Other)
  Sender: FDA-Public Use
  Company Number: US-PFIZER INC-2012253310

PATIENT
  Age: 80 Year
  Sex: Female
  Weight: 52.61 kg

DRUGS (5)
  1. PREMARIN [Suspect]
     Indication: HOT FLUSH
     Dosage: 0.625 mg, 1x/day
     Route: 048
     Dates: end: 2012
  2. PREMARIN [Suspect]
     Indication: FEELING ABNORMAL
     Dosage: 0.625 mg, 1x/day
     Route: 048
     Dates: start: 2012
  3. LOSARTAN [Concomitant]
     Indication: HYPERTENSION
     Dosage: 50 mg, UNK
  4. ASPIRIN [Concomitant]
     Dosage: 80 mg, UNK
  5. MAGNESIUM [Concomitant]
     Dosage: UNK

REACTIONS (3)
  - Deafness [Unknown]
  - Memory impairment [Recovered/Resolved]
  - Malaise [Recovered/Resolved]
